FAERS Safety Report 8894765 (Version 4)
Quarter: 2014Q2

REPORT INFORMATION
  Report Type: Spontaneous
  Country: US (occurrence: US)
  Receive Date: 20121108
  Receipt Date: 20140401
  Transmission Date: 20141212
  Serious: Yes (Disabling)
  Sender: FDA-Public Use
  Company Number: US-009507513-1211USA002989

PATIENT
  Sex: Male
  Weight: 214.6 kg

DRUGS (1)
  1. PROPECIA [Suspect]
     Indication: ANDROGENETIC ALOPECIA
     Dosage: 1 MG, QD
     Route: 048
     Dates: start: 20100209, end: 20131007

REACTIONS (5)
  - Anxiety [Unknown]
  - Sexual dysfunction [Unknown]
  - Stress [Unknown]
  - Libido decreased [Unknown]
  - Erectile dysfunction [Unknown]
